FAERS Safety Report 12541806 (Version 6)
Quarter: 2018Q2

REPORT INFORMATION
  Report Type: Spontaneous
  Country: JP (occurrence: JP)
  Receive Date: 20160708
  Receipt Date: 20180629
  Transmission Date: 20180711
  Serious: Yes (Hospitalization, Disabling, Other)
  Sender: FDA-Public Use
  Company Number: JP-BAXALTA-2016BXJ004710

PATIENT
  Age: 67 Year
  Sex: Male
  Weight: 63 kg

DRUGS (2)
  1. FEIBA NF [Suspect]
     Active Substance: ANTI-INHIBITOR COAGULANT COMPLEX
     Indication: HAEMOSTASIS
     Dosage: 4000 IU, ONCE
     Route: 041
     Dates: start: 20160711, end: 20160711
  2. FEIBA NF [Suspect]
     Active Substance: ANTI-INHIBITOR COAGULANT COMPLEX
     Indication: ACQUIRED HAEMOPHILIA
     Dosage: 4000 IU, 3X A DAY
     Route: 042
     Dates: start: 20160415

REACTIONS (2)
  - Acute myocardial infarction [Recovering/Resolving]
  - Angina pectoris [Unknown]

NARRATIVE: CASE EVENT DATE: 20160629
